FAERS Safety Report 7780609-8 (Version None)
Quarter: 2011Q3

REPORT INFORMATION
  Report Type: 
  Country: None (occurrence: None)
  Receive Date: 20110927
  Receipt Date: 20100914
  Transmission Date: 20111222
  Serious: No
  Sender: FDA-Public Use
  Company Number: US-BRISTOL-MYERS SQUIBB COMPANY-15284458

PATIENT
  Age: 58 Year
  Sex: Female

DRUGS (8)
  1. AVAPRO [Suspect]
     Dosage: STARTED FEW MONTHS AGO
  2. NEXIUM [Concomitant]
  3. FOSRENOL [Concomitant]
  4. VITAMIN B AND C [Concomitant]
  5. SENSIPAR [Concomitant]
  6. AMLODIPINE [Concomitant]
  7. CLONIDINE [Concomitant]
  8. VITAMIN TAB [Concomitant]
     Dosage: RENAL VITAMIN

REACTIONS (1)
  - BLOOD POTASSIUM INCREASED [None]
